FAERS Safety Report 22654162 (Version 1)
Quarter: 2023Q2

REPORT INFORMATION
  Report Type: Spontaneous
  Country: AT (occurrence: AT)
  Receive Date: 20230629
  Receipt Date: 20230629
  Transmission Date: 20230722
  Serious: Yes (Hospitalization)
  Sender: FDA-Public Use
  Company Number: AT-MYLANLABS-2023M1068204

PATIENT
  Age: 67 Year
  Sex: Female

DRUGS (11)
  1. FENTANYL [Suspect]
     Active Substance: FENTANYL
     Indication: Sciatica
     Dosage: 37 MICROGRAM, QH
     Route: 062
  2. FENTANYL [Suspect]
     Active Substance: FENTANYL
     Dosage: 50 MICROGRAM, QH
     Route: 062
  3. FENTANYL [Suspect]
     Active Substance: FENTANYL
     Dosage: 75 MICROGRAM, QH
     Route: 062
  4. ESCITALOPRAM [Suspect]
     Active Substance: ESCITALOPRAM OXALATE
     Indication: Sciatica
     Dosage: 10 MILLIGRAM, AM, IN THE MORNING
     Route: 065
  5. GABAPENTIN [Suspect]
     Active Substance: GABAPENTIN
     Indication: Sciatica
     Dosage: 300 MILLIGRAM, PM, IN THE EVENING
     Route: 048
  6. PREGABALIN [Suspect]
     Active Substance: PREGABALIN
     Indication: Sciatica
     Dosage: 25 MILLIGRAM, BID
     Route: 065
  7. HYDROMORPHONE [Suspect]
     Active Substance: HYDROMORPHONE
     Indication: Sciatica
     Dosage: 1.3 MILLIGRAM, SIX TIMES DAILY
     Route: 065
  8. DIPYRONE [Suspect]
     Active Substance: DIPYRONE
     Indication: Sciatica
     Dosage: UNK, QID, 30 DROPS
     Route: 065
  9. ACETAMINOPHEN [Suspect]
     Active Substance: ACETAMINOPHEN
     Indication: Sciatica
     Dosage: 500 MILLIGRAM
     Route: 065
  10. MORPHINE [Suspect]
     Active Substance: MORPHINE
     Indication: Sciatica
     Dosage: 67.2 MILLIGRAM, QD
     Route: 058
  11. ACETAMINOPHEN [Concomitant]
     Active Substance: ACETAMINOPHEN
     Indication: Sciatica
     Dosage: INFUSION
     Route: 065

REACTIONS (1)
  - Drug ineffective [Unknown]
